FAERS Safety Report 7131305-1 (Version None)
Quarter: 2010Q4

REPORT INFORMATION
  Report Type: 
  Country: None (occurrence: None)
  Receive Date: 20101201
  Receipt Date: 20101118
  Transmission Date: 20110411
  Serious: Yes (Hospitalization)
  Sender: FDA-Public Use
  Company Number: GXKR2010CZ13234

PATIENT
  Age: 48 Year
  Sex: Female

DRUGS (6)
  1. PAROXETINE (NGX) [Suspect]
     Indication: MENTAL DISORDER
     Dosage: 20 MG/DAY
     Route: 048
  2. PAROXETINE (NGX) [Suspect]
     Indication: OBSESSIVE-COMPULSIVE DISORDER
     Dosage: 60 MG/DAY
     Route: 048
  3. IBUPROFEN [Suspect]
     Indication: HEADACHE
     Dosage: 800 MG/DAY
     Route: 048
  4. IBUPROFEN [Suspect]
     Dosage: 400 MG, UNK
     Route: 048
  5. ALPRAZOLAM [Concomitant]
     Dosage: 0.5 MG/DAY
     Route: 065
  6. ANALGESICS [Concomitant]

REACTIONS (13)
  - ABNORMAL BEHAVIOUR [None]
  - ALTERED STATE OF CONSCIOUSNESS [None]
  - APHASIA [None]
  - DELIRIUM [None]
  - DRUG INTERACTION [None]
  - FATIGUE [None]
  - FEELING ABNORMAL [None]
  - HEADACHE [None]
  - MALAISE [None]
  - MENINGEAL DISORDER [None]
  - PARAESTHESIA [None]
  - SOMNOLENCE [None]
  - SUBARACHNOID HAEMORRHAGE [None]
